FAERS Safety Report 5004008-7 (Version None)
Quarter: 2006Q2

REPORT INFORMATION
  Report Type: 
  Country: None (occurrence: None)
  Receive Date: 20060517
  Receipt Date: 20060222
  Transmission Date: 20061013
  Serious: Yes (Other)
  Sender: FDA-Public Use
  Company Number: PHEH2006US02556

PATIENT
  Age: 66 Year
  Sex: Female

DRUGS (3)
  1. ZOMETA [Suspect]
     Indication: BREAST CANCER METASTATIC
     Dosage: UNK, UNK
     Dates: start: 20050823
  2. CHEMOTHERAPEUTICS,OTHER [Concomitant]
  3. DEXAMETHASONE [Concomitant]
     Dosage: Q1-4WKS

REACTIONS (8)
  - ANAEMIA [None]
  - BONE DEBRIDEMENT [None]
  - BONE OPERATION [None]
  - DENTAL TREATMENT [None]
  - MOUTH ULCERATION [None]
  - ORAL PAIN [None]
  - PAIN IN JAW [None]
  - TOOTH EXTRACTION [None]
